FAERS Safety Report 6438081-6 (Version None)
Quarter: 2009Q4

REPORT INFORMATION
  Report Type: 
  Country: None (occurrence: None)
  Receive Date: 20091112
  Receipt Date: 20091110
  Transmission Date: 20100525
  Serious: Yes (Death)
  Sender: FDA-Public Use
  Company Number: PL-BRISTOL-MYERS SQUIBB COMPANY-14822506

PATIENT
  Age: 71 Year
  Sex: Male
  Weight: 58 kg

DRUGS (6)
  1. PACLITAXEL [Suspect]
     Indication: NON-SMALL CELL LUNG CANCER
     Route: 042
     Dates: start: 20090909, end: 20090909
  2. CARBOPLATIN [Suspect]
     Indication: NON-SMALL CELL LUNG CANCER
     Route: 042
     Dates: start: 20090909, end: 20090909
  3. AMLOZEK [Concomitant]
     Indication: HYPERTENSION
     Dates: start: 20030101
  4. METOCARD [Concomitant]
     Indication: HYPERTENSION
     Dates: start: 20030101
  5. ZOCOR [Concomitant]
     Indication: HYPERCHOLESTEROLAEMIA
     Dates: start: 20030101
  6. THEOSPIREX [Concomitant]
     Indication: DYSPNOEA
     Dates: start: 20090814

REACTIONS (1)
  - DEATH [None]
